FAERS Safety Report 12694218 (Version 3)
Quarter: 2016Q4

REPORT INFORMATION
  Report Type: Spontaneous
  Country: US (occurrence: US)
  Receive Date: 20160829
  Receipt Date: 20161216
  Transmission Date: 20170207
  Serious: Yes (Other)
  Sender: FDA-Public Use
  Company Number: US-SA-2016SA153036

PATIENT
  Age: 83 Year
  Sex: Male

DRUGS (2)
  1. MULTAQ [Suspect]
     Active Substance: DRONEDARONE
     Indication: ATRIAL FIBRILLATION
     Route: 065
     Dates: start: 201608, end: 20160814
  2. MULTAQ [Suspect]
     Active Substance: DRONEDARONE
     Indication: ATRIAL FIBRILLATION
     Route: 065
     Dates: start: 201609

REACTIONS (12)
  - Abdominal discomfort [Recovering/Resolving]
  - Pain [Unknown]
  - Diverticulitis [Recovering/Resolving]
  - Sleep disorder [Recovering/Resolving]
  - Eating disorder [Recovering/Resolving]
  - Decreased appetite [Unknown]
  - Pyrexia [Recovering/Resolving]
  - Malaise [Recovering/Resolving]
  - Eructation [Unknown]
  - Nausea [Unknown]
  - Ulcer [Recovered/Resolved]
  - Abdominal pain [Unknown]

NARRATIVE: CASE EVENT DATE: 201608
